FAERS Safety Report 5486846-X (Version None)
Quarter: 2007Q4

REPORT INFORMATION
  Report Type: 
  Country: None (occurrence: None)
  Receive Date: 20071012
  Receipt Date: 20071012
  Transmission Date: 20080405
  Serious: Yes (Hospitalization)
  Sender: FDA-Public Use
  Company Number: None

PATIENT
  Age: 44 Year
  Sex: Male
  Weight: 83.4619 kg

DRUGS (2)
  1. ALDESLEUKIN 600,000 IU/KG - NOVARTIS (CHIRON) [Suspect]
     Indication: METASTATIC RENAL CELL CARCINOMA
     Dosage: 50.214 MU Q 8 HOURS IV
     Route: 042
     Dates: start: 20071002
  2. BEVACIZUMAB 10 MG/KG - GENENTECH [Suspect]
     Dosage: 890 MG Q 2 WEEKS IV
     Route: 042
     Dates: start: 20071002

REACTIONS (3)
  - DRUG TOXICITY [None]
  - HYPOTENSION [None]
  - RENAL FAILURE ACUTE [None]
